FAERS Safety Report 10170042 (Version 1)
Quarter: 2014Q2

REPORT INFORMATION
  Report Type: Report from Study
  Country: CA (occurrence: CA)
  Receive Date: 20140513
  Receipt Date: 20140513
  Transmission Date: 20141212
  Serious: Yes (Other)
  Sender: FDA-Public Use
  Company Number: CA-PFIZER INC-2014128315

PATIENT
  Age: 68 Year
  Sex: Male

DRUGS (2)
  1. HEPARIN SODIUM [Suspect]
     Dosage: UNK
  2. FONDAPARINUX [Concomitant]

REACTIONS (3)
  - Heparin-induced thrombocytopenia [Unknown]
  - Deep vein thrombosis [Unknown]
  - Rash maculo-papular [Unknown]
